FAERS Safety Report 9672346 (Version 1)
Quarter: 2013Q4

REPORT INFORMATION
  Report Type: Spontaneous
  Country: IE (occurrence: IE)
  Receive Date: 20131106
  Receipt Date: 20131106
  Transmission Date: 20140711
  Serious: Yes (Hospitalization)
  Sender: FDA-Public Use
  Company Number: PHHY2013IE122296

PATIENT
  Sex: 0

DRUGS (1)
  1. METFORMIN [Suspect]

REACTIONS (1)
  - Hepatic failure [Unknown]
